FAERS Safety Report 6819592-8 (Version None)
Quarter: 2010Q3

REPORT INFORMATION
  Report Type: 
  Country: None (occurrence: None)
  Receive Date: 20100701
  Receipt Date: 20091113
  Transmission Date: 20110219
  Serious: Yes (Hospitalization)
  Sender: FDA-Public Use
  Company Number: US-TEVA-212376USA

PATIENT
  Sex: Male
  Weight: 86.26 kg

DRUGS (3)
  1. AZILECT [Interacting]
     Indication: PARKINSON'S DISEASE
     Route: 048
  2. DEMEROL [Interacting]
     Indication: PAIN
     Dates: end: 20091001
  3. FLEXERIL [Suspect]
     Indication: PAIN
     Dates: end: 20091001

REACTIONS (4)
  - DRUG INTERACTION [None]
  - MUSCLE SPASMS [None]
  - NEPHROLITHIASIS [None]
  - NIGHTMARE [None]
